FAERS Safety Report 10314123 (Version 1)
Quarter: 2014Q3

REPORT INFORMATION
  Report Type: Spontaneous
  Country: FR (occurrence: FR)
  Receive Date: 20140718
  Receipt Date: 20140718
  Transmission Date: 20150326
  Serious: Yes (Hospitalization)
  Sender: FDA-Public Use
  Company Number: FR-TEVA-493885ISR

PATIENT
  Age: 33 Year
  Sex: Male

DRUGS (1)
  1. GABITRIL [Suspect]
     Active Substance: TIAGABINE HYDROCHLORIDE
     Route: 048
     Dates: start: 20140516, end: 2014

REACTIONS (2)
  - Hallucination [Recovered/Resolved]
  - Aggression [Recovered/Resolved]

NARRATIVE: CASE EVENT DATE: 20140520
